FAERS Safety Report 7809116-0 (Version None)
Quarter: 2011Q4

REPORT INFORMATION
  Report Type: 
  Country: None (occurrence: None)
  Receive Date: 20111012
  Receipt Date: 20111003
  Transmission Date: 20120403
  Serious: Yes (Hospitalization, Other)
  Sender: FDA-Public Use
  Company Number: US-US-EMD SERONO, INC.-7080737

PATIENT
  Sex: Female
  Weight: 77 kg

DRUGS (5)
  1. SIMVASTATIN [Concomitant]
     Indication: HYPERLIPIDAEMIA
  2. REBIF [Suspect]
     Indication: PRODUCT USED FOR UNKNOWN INDICATION
     Route: 058
     Dates: start: 20080205
  3. ENALAPRIL MALEATE [Concomitant]
     Indication: HYPERTENSION
  4. DILTIAZEM HCL [Concomitant]
     Indication: ATRIAL FIBRILLATION
  5. LABETALOL HCL [Concomitant]
     Indication: ATRIAL FIBRILLATION

REACTIONS (9)
  - INJECTION SITE PAIN [None]
  - INJECTION SITE HAEMORRHAGE [None]
  - NASOPHARYNGITIS [None]
  - VIRAL INFECTION [None]
  - WHITE BLOOD CELL COUNT DECREASED [None]
  - PAIN IN EXTREMITY [None]
  - ATRIAL FIBRILLATION [None]
  - LIVER FUNCTION TEST ABNORMAL [None]
  - CLOSTRIDIAL INFECTION [None]
